FAERS Safety Report 10232760 (Version 1)
Quarter: 2014Q2

REPORT INFORMATION
  Report Type: Spontaneous
  Country: US (occurrence: None)
  Receive Date: 20140506
  Receipt Date: 20140506
  Transmission Date: 20141212
  Serious: Yes (Hospitalization)
  Sender: FDA-Public Use
  Company Number: 1248067

PATIENT
  Sex: Female

DRUGS (5)
  1. AVASTIN (BEVACIZUMAB) [Suspect]
     Indication: RECTAL ADENOCARCINOMA
     Dosage: UNKNOWN
  2. XELODA (CAPECITABINE) [Suspect]
     Indication: RECTAL ADENOCARCINOMA
     Dosage: UNKNOWN
  3. OXALIPLATIN (OXALIPLATIN) [Suspect]
     Indication: RECTAL ADENOCARCINOMA
     Dosage: UNKNOWN
  4. ERBITUX (CETUXIMAB) [Concomitant]
  5. IRINOTECAN (IRINOTECAN HYDROCHLORIDE) [Concomitant]

REACTIONS (4)
  - Intestinal obstruction [None]
  - Dehydration [None]
  - Weight decreased [None]
  - Drug resistance [None]
